FAERS Safety Report 15782782 (Version 1)
Quarter: 2019Q1

REPORT INFORMATION
  Report Type: Spontaneous
  Country: FR (occurrence: FR)
  Receive Date: 20190102
  Receipt Date: 20190102
  Transmission Date: 20190417
  Serious: Yes (Other)
  Sender: FDA-Public Use
  Company Number: FR-PFIZER INC-2018531560

PATIENT
  Age: 17 Year
  Sex: Female

DRUGS (2)
  1. CODOLIPRANE [Suspect]
     Active Substance: ACETAMINOPHEN\CODEINE PHOSPHATE
     Indication: TOXICITY TO VARIOUS AGENTS
     Dosage: 2 DF, SINGLE
     Route: 048
     Dates: start: 20170824, end: 20170824
  2. XANAX [Suspect]
     Active Substance: ALPRAZOLAM
     Indication: TOXICITY TO VARIOUS AGENTS
     Dosage: 6 MG, SINGLE
     Route: 048
     Dates: start: 20170824, end: 20170824

REACTIONS (4)
  - Anxiety [Recovered/Resolved]
  - Somnolence [Recovered/Resolved]
  - Off label use [Unknown]
  - Toxicity to various agents [Unknown]

NARRATIVE: CASE EVENT DATE: 20170824
